FAERS Safety Report 25215344 (Version 2)
Quarter: 2025Q2

REPORT INFORMATION
  Report Type: Report from Study
  Country: JP (occurrence: JP)
  Receive Date: 20250418
  Receipt Date: 20250622
  Transmission Date: 20250716
  Serious: Yes (Other)
  Sender: ALEXION PHARMACEUTICALS
  Company Number: JP-ASTRAZENECA-202410JPN000824JP

PATIENT
  Age: 17 Year
  Weight: 29.1 kg

DRUGS (2)
  1. KOSELUGO [Suspect]
     Active Substance: SELUMETINIB
     Indication: Neurofibromatosis
  2. KOSELUGO [Suspect]
     Active Substance: SELUMETINIB

REACTIONS (4)
  - Rhabdomyolysis [Recovered/Resolved]
  - Dermatitis acneiform [Recovering/Resolving]
  - Otitis externa [Recovered/Resolved]
  - Upper respiratory tract inflammation [Recovered/Resolved]
